FAERS Safety Report 23250410 (Version 1)
Quarter: 2023Q4

REPORT INFORMATION
  Report Type: Spontaneous
  Country: US (occurrence: None)
  Receive Date: 20231130
  Receipt Date: 20231130
  Transmission Date: 20240110
  Serious: Yes (Hospitalization, Disabling)
  Sender: FDA-Public Use
  Company Number: None

PATIENT
  Age: 40 Year
  Sex: Female

DRUGS (4)
  1. COTELLIC [Suspect]
     Active Substance: COBIMETINIB
     Indication: Malignant melanoma
     Dosage: OTHER FREQUENCY : 3 TABLETS DAILY;?
     Route: 048
     Dates: start: 20231107
  2. ZELBORAF [Suspect]
     Active Substance: VEMURAFENIB
     Dosage: OTHER FREQUENCY : 4 TABLETS TWICE DA;?
     Route: 048
  3. VITAMIN D3 [Concomitant]
     Active Substance: CHOLECALCIFEROL
  4. FOLIC ACID [Concomitant]
     Active Substance: FOLIC ACID

REACTIONS (2)
  - Hypoglycaemia [None]
  - Therapy interrupted [None]

NARRATIVE: CASE EVENT DATE: 20231120
